FAERS Safety Report 13457902 (Version 1)
Quarter: 2017Q2

REPORT INFORMATION
  Report Type: Spontaneous
  Country: US (occurrence: US)
  Receive Date: 20170419
  Receipt Date: 20170419
  Transmission Date: 20170830
  Serious: Yes (Death, Hospitalization, Other)
  Sender: FDA-Public Use
  Company Number: US-BRISTOL-MYERS SQUIBB COMPANY-BMS-2017-032743

PATIENT
  Sex: Male

DRUGS (1)
  1. ELIQUIS [Suspect]
     Active Substance: APIXABAN
     Indication: CARDIAC FAILURE CONGESTIVE
     Route: 065
     Dates: start: 201606

REACTIONS (3)
  - Product use in unapproved indication [Unknown]
  - Cardiac failure [Fatal]
  - Adverse event [Unknown]
